FAERS Safety Report 6011811-3 (Version None)
Quarter: 2008Q4

REPORT INFORMATION
  Report Type: 
  Country: None (occurrence: None)
  Receive Date: 20081218
  Receipt Date: 20080912
  Transmission Date: 20090506
  Serious: No
  Sender: FDA-Public Use
  Company Number: US-ABBOTT-08P-163-0476217-00

PATIENT
  Sex: Female
  Weight: 77.18 kg

DRUGS (2)
  1. MERIDIA [Suspect]
     Indication: WEIGHT CONTROL
     Route: 048
     Dates: start: 20080801
  2. OMEPRAZOLE [Concomitant]
     Indication: DYSPEPSIA
     Dosage: ONE TABLET A DAY
     Route: 048
     Dates: start: 19930101

REACTIONS (1)
  - ABDOMINAL DISTENSION [None]
